FAERS Safety Report 13076060 (Version 1)
Quarter: 2016Q4

REPORT INFORMATION
  Report Type: Spontaneous
  Country: US (occurrence: US)
  Receive Date: 20161230
  Receipt Date: 20161230
  Transmission Date: 20170207
  Serious: No
  Sender: FDA-Public Use
  Company Number: US-GE HEALTHCARE MEDICAL DIAGNOSTICS-OMPQ-PR-1612S-2415

PATIENT
  Age: 56 Year
  Sex: Male
  Weight: 79 kg

DRUGS (2)
  1. OMNIPAQUE [Suspect]
     Active Substance: IOHEXOL
     Indication: HEPATIC CANCER METASTATIC
     Dosage: DOSE NOT REPORTED
     Route: 013
     Dates: start: 20160822, end: 20160822
  2. OMNIPAQUE [Suspect]
     Active Substance: IOHEXOL
     Indication: THERAPEUTIC PROCEDURE

REACTIONS (1)
  - Fixed drug eruption [Recovered/Resolved]

NARRATIVE: CASE EVENT DATE: 20160822
